FAERS Safety Report 8216784-0 (Version None)
Quarter: 2012Q1

REPORT INFORMATION
  Report Type: 
  Country: None (occurrence: None)
  Receive Date: 20120316
  Receipt Date: 20120314
  Transmission Date: 20120608
  Serious: No
  Sender: FDA-Public Use
  Company Number: US-TEVA-328146USA

PATIENT
  Sex: Male

DRUGS (2)
  1. SINEMET [Concomitant]
     Indication: PARKINSON'S DISEASE
     Route: 048
  2. AZILECT [Suspect]
     Indication: PARKINSON'S DISEASE
     Dosage: 1 MILLIGRAM;
     Route: 048

REACTIONS (1)
  - HALLUCINATION [None]
